FAERS Safety Report 9220913 (Version 1)
Quarter: 2013Q2

REPORT INFORMATION
  Report Type: Report from Study
  Country: VE (occurrence: VE)
  Receive Date: 20130409
  Receipt Date: 20130409
  Transmission Date: 20140414
  Serious: Yes (Hospitalization, Other)
  Sender: FDA-Public Use
  Company Number: VE-ABBOTT-13P-178-1072930-00

PATIENT
  Age: 60 Year
  Sex: Female
  Weight: 72 kg

DRUGS (2)
  1. HUMIRA [Suspect]
     Indication: RHEUMATOID ARTHRITIS
     Route: 058
     Dates: start: 20111116, end: 201207
  2. DANTOINAL [Concomitant]
     Indication: EPILEPSY
     Route: 048

REACTIONS (2)
  - Convulsion [Recovered/Resolved]
  - Pneumonia [Recovered/Resolved]
